FAERS Safety Report 9580500 (Version 4)
Quarter: 2014Q1

REPORT INFORMATION
  Report Type: Spontaneous
  Country: US (occurrence: None)
  Receive Date: 20130930
  Receipt Date: 20140328
  Transmission Date: 20141002
  Serious: Yes (Congenital Anomaly, Other)
  Sender: FDA-Public Use
  Company Number: KAD201309-001253

PATIENT
  Age: 0 Day
  Sex: Male
  Weight: 2.1 kg

DRUGS (7)
  1. RIBAVIRIN [Suspect]
     Route: 064
     Dates: start: 20111020, end: 20111115
  2. REYATAZ [Suspect]
     Route: 064
  3. NORVIR [Suspect]
     Route: 064
  4. TRUVADA [Suspect]
     Route: 064
  5. PROVENTIL [Suspect]
     Route: 064
  6. PRENATAL VITAMINS [Suspect]
     Route: 064
  7. FOLATE SUPPLEMENT (FOLATE SUPPLEMENT) [Suspect]
     Dosage: TRANSPLACENTAL.

REACTIONS (3)
  - Maternal drugs affecting foetus [None]
  - Deafness congenital [None]
  - Drug interaction [None]
